FAERS Safety Report 24650252 (Version 1)
Quarter: 2024Q4

REPORT INFORMATION
  Report Type: Spontaneous
  Country: US (occurrence: US)
  Receive Date: 20241122
  Receipt Date: 20241122
  Transmission Date: 20250114
  Serious: No
  Sender: SANOFI AVENTIS
  Company Number: US-SA-2024SA339208

PATIENT
  Sex: Female
  Weight: 79.55 kg

DRUGS (14)
  1. DUPIXENT [Suspect]
     Active Substance: DUPILUMAB
     Indication: Eosinophilic oesophagitis
     Dosage: 300 MG, QW
     Route: 058
     Dates: start: 20240608
  2. CYCLOBENZAPRINE HYDROCHLORIDE [Concomitant]
     Active Substance: CYCLOBENZAPRINE HYDROCHLORIDE
  3. RABEPRAZOLE SODIUM [Concomitant]
     Active Substance: RABEPRAZOLE SODIUM
  4. LISINOPRIL [Concomitant]
     Active Substance: LISINOPRIL
  5. MELATONIN [Concomitant]
     Active Substance: MELATONIN
  6. VITAMIN B12 [Concomitant]
     Active Substance: CYANOCOBALAMIN
  7. VITAMIN D3 [Concomitant]
     Active Substance: CHOLECALCIFEROL
  8. VITAMINS [Concomitant]
     Active Substance: VITAMINS
  9. VITAMIN C [Concomitant]
     Active Substance: ASCORBIC ACID
  10. RISPERDAL [Concomitant]
     Active Substance: RISPERIDONE
  11. ESCITALOPRAM OXALATE [Concomitant]
     Active Substance: ESCITALOPRAM OXALATE
  12. OXYBUTYNIN CHLORIDE [Concomitant]
     Active Substance: OXYBUTYNIN CHLORIDE
  13. LISINOPRIL [Concomitant]
     Active Substance: LISINOPRIL
  14. LATANOPROST [Concomitant]
     Active Substance: LATANOPROST

REACTIONS (1)
  - Dyspepsia [Unknown]

NARRATIVE: CASE EVENT DATE: 20240101
